FAERS Safety Report 5052149-0 (Version None)
Quarter: 2006Q3

REPORT INFORMATION
  Report Type: 
  Country: None (occurrence: None)
  Receive Date: 20060712
  Receipt Date: 20060712
  Transmission Date: 20061208
  Serious: Yes (Hospitalization)
  Sender: FDA-Public Use
  Company Number: None

PATIENT
  Age: 81 Year
  Sex: Male
  Weight: 66 kg

DRUGS (2)
  1. POLYMIXIN B [Suspect]
     Indication: KLEBSIELLA INFECTION
     Dosage: 1750K U, 875K Q12, INTRAVEN
     Route: 042
     Dates: start: 20060511, end: 20060530
  2. POLYMIXIN B [Suspect]
     Indication: URINARY TRACT INFECTION
     Dosage: 1750K U, 875K Q12, INTRAVEN
     Route: 042
     Dates: start: 20060511, end: 20060530

REACTIONS (1)
  - BLOOD CREATININE INCREASED [None]
